FAERS Safety Report 9348137 (Version 1)
Quarter: 2013Q2

REPORT INFORMATION
  Report Type: Spontaneous
  Country: US (occurrence: US)
  Receive Date: 20130614
  Receipt Date: 20130614
  Transmission Date: 20140414
  Serious: Yes (Other)
  Sender: FDA-Public Use
  Company Number: US-JNJFOC-20130602462

PATIENT
  Age: 73 Year
  Sex: Male

DRUGS (1)
  1. TOPIRAMATE [Suspect]
     Indication: HEADACHE
     Route: 065

REACTIONS (3)
  - Disorientation [Unknown]
  - Papilloedema [Recovered/Resolved]
  - Perseveration [Unknown]
